FAERS Safety Report 5765692-3 (Version None)
Quarter: 2008Q2

REPORT INFORMATION
  Report Type: 
  Country: None (occurrence: None)
  Receive Date: 20080609
  Receipt Date: 20080609
  Transmission Date: 20081010
  Serious: Yes (Hospitalization)
  Sender: FDA-Public Use
  Company Number: None

PATIENT
  Age: 53 Year
  Sex: Male
  Weight: 83 kg

DRUGS (1)
  1. PHENYTOIN [Suspect]
     Indication: CONVULSION
     Dosage: 100 MG TID PO
     Route: 048

REACTIONS (2)
  - ANOREXIA [None]
  - MALAISE [None]
